FAERS Safety Report 6083044-6 (Version None)
Quarter: 2009Q1

REPORT INFORMATION
  Report Type: 
  Country: None (occurrence: None)
  Receive Date: 20090218
  Receipt Date: 20090210
  Transmission Date: 20090719
  Serious: Yes (Other)
  Sender: FDA-Public Use
  Company Number: US-GENENTECH-277065

PATIENT
  Sex: Female

DRUGS (2)
  1. AVASTIN [Suspect]
     Indication: BREAST CANCER METASTATIC
     Dosage: UNK
     Route: 042
     Dates: start: 20080429
  2. ABRAXANE [Concomitant]
     Indication: DRUG USE FOR UNKNOWN INDICATION
     Dosage: UNK
     Dates: start: 20080429, end: 20080826

REACTIONS (2)
  - ANGIOPATHY [None]
  - HEADACHE [None]
